FAERS Safety Report 5704106-6 (Version None)
Quarter: 2008Q2

REPORT INFORMATION
  Report Type: 
  Country: None (occurrence: None)
  Receive Date: 20080414
  Receipt Date: 20080401
  Transmission Date: 20081010
  Serious: No
  Sender: FDA-Public Use
  Company Number: US-BAYER-200818699NA

PATIENT
  Age: 57 Year
  Sex: Female
  Weight: 109 kg

DRUGS (4)
  1. ULTRAVIST 300 [Suspect]
     Indication: COMPUTERISED TOMOGRAM
     Dosage: TOTAL DAILY DOSE: 100 ML  UNIT DOSE: 100 ML
     Route: 042
     Dates: start: 20080401, end: 20080401
  2. ULTRAVIST 300 [Suspect]
     Dosage: TOTAL DAILY DOSE: 20 ML  UNIT DOSE: 50 ML
     Route: 042
     Dates: start: 20080401, end: 20080401
  3. METFORMIN HCL [Concomitant]
  4. METOPROLOL TARTRATE [Concomitant]

REACTIONS (4)
  - EYE SWELLING [None]
  - HEADACHE [None]
  - PRODUCTIVE COUGH [None]
  - URTICARIA [None]
